FAERS Safety Report 8527896 (Version 3)
Quarter: 2013Q3

REPORT INFORMATION
  Report Type: Spontaneous
  Country: FR (occurrence: FR)
  Receive Date: 20130923
  Receipt Date: 20130923
  Transmission Date: 20140515
  Serious: Yes (Other)
  Sender: FDA-Public Use
  Company Number: FR-JNJFOC-20120409607

PATIENT
  Sex: 0

DRUGS (7)
  1. DOXORUBICIN [Suspect]
     Indication: T-CELL LYMPHOMA
     Route: 042
  2. DOXORUBICIN [Suspect]
     Indication: T-CELL LYMPHOMA
     Route: 065
  3. CYCLOPHOSPHAMIDE [Suspect]
     Indication: T-CELL LYMPHOMA
     Route: 065
  4. VINCRISTINE [Suspect]
     Indication: T-CELL LYMPHOMA
     Route: 065
  5. PREDNISONE [Suspect]
     Indication: T-CELL LYMPHOMA
     Route: 065
  6. ROMIDEPSIN [Suspect]
     Indication: T-CELL LYMPHOMA
     Route: 065
  7. ROMIDEPSIN [Suspect]
     Indication: T-CELL LYMPHOMA
     Dosage: ESCALATING DOSES
     Route: 065

REACTIONS (2)
  - General physical health deterioration [Unknown]
  - Haematotoxicity [Unknown]
